FAERS Safety Report 8904032 (Version 1)
Quarter: 2012Q4

REPORT INFORMATION
  Report Type: Report from Study
  Country: GB (occurrence: GB)
  Receive Date: 20121112
  Receipt Date: 20121112
  Transmission Date: 20130627
  Serious: Yes (Other)
  Sender: FDA-Public Use
  Company Number: GB-VERTEX PHARMACEUTICAL INC.-2012-024316

PATIENT
  Age: 34 Year
  Sex: Male

DRUGS (3)
  1. VX-950 [Suspect]
     Indication: HEPATITIS C
  2. PEG INTERFERON [Suspect]
     Indication: HEPATITIS C
     Dosage: Dosage Form: Unspecified
     Route: 058
     Dates: start: 20120927
  3. RIBAVIRIN [Suspect]
     Indication: HEPATITIS C
     Dosage: Dosage Form: Unspecified
     Route: 048
     Dates: start: 20120927

REACTIONS (2)
  - Dizziness [Not Recovered/Not Resolved]
  - Asthenia [Unknown]
